FAERS Safety Report 10044890 (Version 3)
Quarter: 2014Q2

REPORT INFORMATION
  Report Type: Spontaneous
  Country: EE (occurrence: EE)
  Receive Date: 20140328
  Receipt Date: 20140506
  Transmission Date: 20141212
  Serious: Yes (Other)
  Sender: FDA-Public Use
  Company Number: EE-ASTRAZENECA-2014SE20018

PATIENT
  Sex: Female

DRUGS (4)
  1. SYMBICORT [Suspect]
     Indication: ASTHMA
     Dosage: 160/4,5 MCG, 1 DF IN THE MORNING
     Route: 055
  2. SOMNOLS [Concomitant]
  3. IMOVANE [Concomitant]
  4. VALOCORDIN [Concomitant]

REACTIONS (4)
  - Dyspnoea [Unknown]
  - Condition aggravated [Unknown]
  - Blood pressure systolic increased [Unknown]
  - Circumstance or information capable of leading to medication error [Unknown]
